FAERS Safety Report 6520230-2 (Version None)
Quarter: 2009Q4

REPORT INFORMATION
  Report Type: 
  Country: None (occurrence: None)
  Receive Date: 20091229
  Receipt Date: 20091224
  Transmission Date: 20100525
  Serious: Yes (Death, Hospitalization, Other)
  Sender: FDA-Public Use
  Company Number: PHEH2009US18183

PATIENT
  Sex: Male

DRUGS (3)
  1. GLEEVEC [Suspect]
     Indication: CHRONIC MYELOID LEUKAEMIA
     Dosage: 400 MG, QD
     Route: 048
     Dates: start: 20090514, end: 20091206
  2. GEMZAR [Concomitant]
     Dosage: 1250 DAYS 1 AND 8
     Route: 042
     Dates: start: 20091112
  3. CARBOPLATIN [Concomitant]
     Dosage: 350 EVERY 3 WEEKS
     Route: 042

REACTIONS (8)
  - BLOOD CREATININE INCREASED [None]
  - CARDIOMYOPATHY [None]
  - CHRONIC MYELOID LEUKAEMIA [None]
  - CORONARY ARTERY DISEASE [None]
  - METASTATIC CARCINOMA OF THE BLADDER [None]
  - PLATELET COUNT DECREASED [None]
  - SEPSIS [None]
  - SEPTIC SHOCK [None]
